FAERS Safety Report 7649977-1 (Version None)
Quarter: 2011Q3

REPORT INFORMATION
  Report Type: 
  Country: None (occurrence: None)
  Receive Date: 20110802
  Receipt Date: 20110721
  Transmission Date: 20111222
  Serious: Yes (Other)
  Sender: FDA-Public Use
  Company Number: AU-JNJFOC-20110708617

PATIENT

DRUGS (2)
  1. REMICADE [Suspect]
     Indication: ANKYLOSING SPONDYLITIS
     Dosage: RECEIVED 3 INFUSIONS 18 MONTHS AGO
     Route: 042
     Dates: start: 20090101
  2. REMICADE [Suspect]
     Dosage: STOPPED INFLIXIMAB AFTER THE 3RD INFUSION
     Route: 042

REACTIONS (2)
  - ADVERSE DRUG REACTION [None]
  - SCLERODERMA [None]
